FAERS Safety Report 8213396-X (Version None)
Quarter: 2012Q1

REPORT INFORMATION
  Report Type: 
  Country: None (occurrence: None)
  Receive Date: 20120315
  Receipt Date: 20120301
  Transmission Date: 20120608
  Serious: Yes (Other)
  Sender: FDA-Public Use
  Company Number: US-ROCHE-787257

PATIENT
  Sex: Female

DRUGS (1)
  1. BONIVA [Suspect]
     Indication: PRODUCT USED FOR UNKNOWN INDICATION
     Dosage: LAST DOSE PRIOR TO SAE: 1 MAR 12
     Route: 065

REACTIONS (7)
  - PERIODONTITIS [None]
  - HIV TEST POSITIVE [None]
  - PERIODONTAL DISEASE [None]
  - DENTAL CARIES [None]
  - BLOOD PHOSPHORUS ABNORMAL [None]
  - GINGIVAL RECESSION [None]
  - VITAMIN D INCREASED [None]
